FAERS Safety Report 21925019 (Version 1)
Quarter: 2023Q1

REPORT INFORMATION
  Report Type: Spontaneous
  Country: CN (occurrence: CN)
  Receive Date: 20230130
  Receipt Date: 20230130
  Transmission Date: 20230418
  Serious: Yes (Death, Other)
  Sender: FDA-Public Use
  Company Number: CN-UCBSA-2023003577

PATIENT
  Age: 5 Year
  Sex: Male

DRUGS (9)
  1. MIDAZOLAM [Suspect]
     Active Substance: MIDAZOLAM
     Indication: Sedation
     Dosage: 2.6 ?/KG/MIN
  2. DOBUTAMINE [Suspect]
     Active Substance: DOBUTAMINE HYDROCHLORIDE
     Indication: Cardiac contractility modulation therapy
     Dosage: 5.8 ?/KG/MIN
  3. MANNITOL [Suspect]
     Active Substance: MANNITOL
     Indication: Intracranial pressure increased
     Dosage: 100 ML Q.4.H.
  4. SULBACTAM [Suspect]
     Active Substance: SULBACTAM
     Indication: Infection prophylaxis
     Dosage: 1.5 GRAM
  5. CEFOPERAZONE [Suspect]
     Active Substance: CEFOPERAZONE
     Indication: Infection prophylaxis
     Dosage: 1.5 GRAM
  6. VITAMIN C [Concomitant]
     Active Substance: ASCORBIC ACID
     Indication: Myocardial calcification
     Dosage: 4 GRAM
  7. SODIUM CHLORIDE [Concomitant]
     Active Substance: SODIUM CHLORIDE
     Indication: Hypovolaemia
     Dosage: 350 MILLILITER
  8. SODIUM CHLORIDE [Concomitant]
     Active Substance: SODIUM CHLORIDE
     Indication: Hyponatraemia
     Dosage: 70 MILLILITER
  9. FOSFRUCTOSE [Suspect]
     Active Substance: FOSFRUCTOSE
     Indication: Myocardial infarction
     Dosage: 3 MILLIGRAM

REACTIONS (3)
  - Phaeochromocytoma crisis [Fatal]
  - Coma [Fatal]
  - Pyrexia [Fatal]
